FAERS Safety Report 5878926-1 (Version None)
Quarter: 2008Q3

REPORT INFORMATION
  Report Type: 
  Country: None (occurrence: None)
  Receive Date: 20080912
  Receipt Date: 20080903
  Transmission Date: 20090109
  Serious: Yes (Death, Hospitalization)
  Sender: FDA-Public Use
  Company Number: US-JNJFOC-20080705428

PATIENT
  Sex: Female
  Weight: 78.47 kg

DRUGS (13)
  1. REMICADE [Suspect]
     Route: 042
  2. REMICADE [Suspect]
     Route: 042
  3. REMICADE [Suspect]
     Indication: COLITIS ULCERATIVE
     Route: 042
  4. IMURAN [Concomitant]
  5. IMURAN [Concomitant]
  6. IMURAN [Concomitant]
  7. IMURAN [Concomitant]
  8. IMURAN [Concomitant]
  9. IMURAN [Concomitant]
  10. ASACOL [Concomitant]
  11. ASACOL [Concomitant]
  12. COLAZOL [Concomitant]
  13. PREDNISONE TAB [Concomitant]

REACTIONS (4)
  - EPSTEIN-BARR VIRUS INFECTION [None]
  - NAUSEA [None]
  - PAIN [None]
  - VOMITING [None]
